FAERS Safety Report 17598620 (Version 1)
Quarter: 2020Q1

REPORT INFORMATION
  Report Type: Spontaneous
  Country: US (occurrence: US)
  Receive Date: 20200330
  Receipt Date: 20200330
  Transmission Date: 20200409
  Serious: Yes (Other)
  Sender: FDA-Public Use
  Company Number: US-MYLANLABS-2020M1032934

PATIENT
  Age: 69 Year
  Sex: Male

DRUGS (3)
  1. SOTALOL. [Concomitant]
     Active Substance: SOTALOL
     Indication: VENTRICULAR TACHYCARDIA
     Dosage: LATER REDUCED DUE TO WORSENED RENAL FUNCTION
     Route: 065
  2. SOTALOL. [Concomitant]
     Active Substance: SOTALOL
     Dosage: 80 MILLIGRAM, QD
     Route: 065
  3. LOPERAMIDE [Suspect]
     Active Substance: LOPERAMIDE
     Indication: IRRITABLE BOWEL SYNDROME
     Dosage: RECEIVING FROM THE LAST 7 DAYS (2 TABLETS OF 100 EACH PER DAY)
     Route: 065

REACTIONS (4)
  - Syncope [Recovered/Resolved]
  - Ventricular tachycardia [Recovered/Resolved]
  - Toxicity to various agents [Recovered/Resolved]
  - Torsade de pointes [Recovered/Resolved]
